FAERS Safety Report 22382772 (Version 1)
Quarter: 2023Q2

REPORT INFORMATION
  Report Type: Spontaneous
  Country: US (occurrence: US)
  Receive Date: 20230530
  Receipt Date: 20230530
  Transmission Date: 20230722
  Serious: No
  Sender: FDA-Public Use
  Company Number: US-ZENPEP LLC-2023AIMT00498

PATIENT

DRUGS (10)
  1. ZENPEP [Suspect]
     Active Substance: PANCRELIPASE AMYLASE\PANCRELIPASE LIPASE\PANCRELIPASE PROTEASE
     Indication: Pancreatic failure
     Dosage: 40,000 USP UNITS, TWO WITH EVERY MEAL AND ONE WITH SNACK
     Route: 048
     Dates: start: 20230411
  2. ZENPEP [Suspect]
     Active Substance: PANCRELIPASE AMYLASE\PANCRELIPASE LIPASE\PANCRELIPASE PROTEASE
     Dosage: 40,000 USP UNITS, ONCE, LAST DOSE PRIOR TO EVENT
     Route: 048
     Dates: start: 202305, end: 202305
  3. BENEFIBER FIBER SUPPLEMENT [Concomitant]
     Indication: Irritable bowel syndrome
     Dosage: 2 TABLESPOONS ONE TIME EACH MORNING
  4. ALIGN JR [Concomitant]
     Indication: Irritable bowel syndrome
     Dosage: ONE DAILY
  5. LISINOPRIL [Concomitant]
     Active Substance: LISINOPRIL
     Indication: Blood pressure measurement
     Dosage: 10 MG, 1X/DAY
  6. DULOXETINE [Concomitant]
     Active Substance: DULOXETINE
     Indication: Depression
     Dosage: 60 MG, 1X/DAY
  7. AMITRIPTYLINE [Concomitant]
     Active Substance: AMITRIPTYLINE
     Indication: Sleep terror
     Dosage: 25 MG, 1X/DAY, EVERY NIGHT
  8. GABAPENTIN [Concomitant]
     Active Substance: GABAPENTIN
     Indication: Fibromyalgia
     Dosage: 300 MG, 1X/DAY, EVERY NIGHT
  9. ATORVASTATIN [Concomitant]
     Active Substance: ATORVASTATIN
     Indication: Blood cholesterol increased
     Dosage: 20 MG, 1X/DAY, EVERY NIGHT
  10. DICYCLOMINE [Concomitant]
     Active Substance: DICYCLOMINE HYDROCHLORIDE
     Indication: Irritable bowel syndrome
     Dosage: 10 MG

REACTIONS (2)
  - Drug effect less than expected [Not Recovered/Not Resolved]
  - Constipation [Not Recovered/Not Resolved]

NARRATIVE: CASE EVENT DATE: 20230411
